FAERS Safety Report 5937699-4 (Version None)
Quarter: 2008Q4

REPORT INFORMATION
  Report Type: 
  Country: None (occurrence: None)
  Receive Date: 20081031
  Receipt Date: 20081021
  Transmission Date: 20090506
  Serious: Yes (Hospitalization)
  Sender: FDA-Public Use
  Company Number: US-MERCK-0808USA04185

PATIENT
  Age: 76 Year
  Sex: Female
  Weight: 95 kg

DRUGS (12)
  1. JANUVIA [Suspect]
     Indication: DIABETES MELLITUS
     Route: 048
     Dates: start: 20070606, end: 20080418
  2. AVANDIA [Concomitant]
     Route: 065
  3. GLUCOPHAGE [Concomitant]
     Route: 065
  4. QUINAPRIL HYDROCHLORIDE [Concomitant]
     Route: 065
  5. LOPRESSOR [Concomitant]
     Route: 065
  6. ZOCOR [Concomitant]
     Route: 048
  7. SYNTHROID [Concomitant]
     Route: 065
  8. EFFEXOR XR [Concomitant]
     Route: 065
  9. NEXIUM [Concomitant]
     Route: 065
  10. NOVOLOG [Concomitant]
     Route: 065
  11. LEVEMIR [Concomitant]
     Route: 065
  12. DARVOCET-N 100 [Concomitant]
     Indication: PAIN
     Route: 065

REACTIONS (1)
  - PANCREATITIS ACUTE [None]
